FAERS Safety Report 16342030 (Version 3)
Quarter: 2025Q3

REPORT INFORMATION
  Report Type: Spontaneous
  Country: EU (occurrence: EU)
  Receive Date: 20190522
  Receipt Date: 20250721
  Transmission Date: 20251021
  Serious: Yes (Other)
  Sender: AUROBINDO
  Company Number: EU-PFIZER INC-2018321017

PATIENT
  Age: 53 Year
  Sex: Male
  Weight: 85 kg

DRUGS (11)
  1. ACETAMINOPHEN [Suspect]
     Active Substance: ACETAMINOPHEN
     Indication: Product used for unknown indication
     Route: 045
  2. THYMOCYTE IMMUNE GLOBULIN NOS [Suspect]
     Active Substance: THYMOCYTE IMMUNE GLOBULIN NOS
     Indication: Liver transplant
     Route: 042
  3. CHLORPHENIRAMINE MALEATE [Suspect]
     Active Substance: CHLORPHENIRAMINE MALEATE
     Indication: Product used for unknown indication
     Route: 042
  4. METHYLPREDNISOLONE SODIUM SUCCINATE [Suspect]
     Active Substance: METHYLPREDNISOLONE SODIUM SUCCINATE
     Indication: Product used for unknown indication
     Route: 042
  5. THIOPENTAL [Concomitant]
     Active Substance: THIOPENTAL
     Indication: Anaesthesia
     Route: 065
  6. FENTANYL [Concomitant]
     Active Substance: FENTANYL
     Indication: Anaesthesia
     Route: 065
  7. URAPIDIL [Concomitant]
     Active Substance: URAPIDIL
     Indication: Blood pressure increased
     Route: 065
  8. MIDAZOLAM [Concomitant]
     Active Substance: MIDAZOLAM
     Indication: Anaesthesia
     Route: 065
  9. AMPICILLIN [Concomitant]
     Active Substance: AMPICILLIN
     Indication: Product used for unknown indication
     Route: 065
  10. VECURONIUM [Concomitant]
     Active Substance: VECURONIUM BROMIDE
     Indication: Anaesthesia
     Route: 065
  11. DESFLURANE [Concomitant]
     Active Substance: DESFLURANE
     Indication: Anaesthesia
     Route: 065

REACTIONS (5)
  - Swelling [Recovered/Resolved]
  - Cardiovascular disorder [Recovered/Resolved]
  - Serum sickness [Recovered/Resolved]
  - Hyperthermia [Recovered/Resolved]
  - Acute kidney injury [Recovered/Resolved]
